FAERS Safety Report 17056234 (Version 2)
Quarter: 2019Q4

REPORT INFORMATION
  Report Type: Report from Study
  Country: None (occurrence: DE)
  Receive Date: 20191121
  Receipt Date: 20191224
  Transmission Date: 20200122
  Serious: Yes (Death)
  Sender: FDA-Public Use
  Company Number: DE-ABBVIE-19K-062-3006491-00

PATIENT
  Sex: Female

DRUGS (1)
  1. DUODOPA [Suspect]
     Active Substance: CARBIDOPA\LEVODOPA
     Indication: PARKINSON^S DISEASE
     Dosage: MD: 8ML, CRD: 3ML/H, ED: 2.1ML?STRENGTH: 20 MG/ML 5 MG/ML
     Route: 050
     Dates: start: 20140827

REACTIONS (2)
  - General physical health deterioration [Fatal]
  - Dementia [Fatal]
